FAERS Safety Report 11393910 (Version 2)
Quarter: 2015Q4

REPORT INFORMATION
  Report Type: Spontaneous
  Country: GB (occurrence: GB)
  Receive Date: 20150819
  Receipt Date: 20151106
  Transmission Date: 20160304
  Serious: Yes (Other)
  Sender: FDA-Public Use
  Company Number: GB-ASTRAZENECA-2015SE78038

PATIENT
  Sex: Female

DRUGS (2)
  1. FORXIGA [Suspect]
     Active Substance: DAPAGLIFLOZIN
     Indication: TYPE 1 DIABETES MELLITUS
     Route: 048
     Dates: start: 2014
  2. FORXIGA [Suspect]
     Active Substance: DAPAGLIFLOZIN
     Indication: WEIGHT DECREASED
     Route: 048
     Dates: start: 2014

REACTIONS (3)
  - Gastric cancer [Unknown]
  - Off label use [Unknown]
  - Product use issue [Unknown]
